FAERS Safety Report 17625772 (Version 9)
Quarter: 2021Q3

REPORT INFORMATION
  Report Type: Spontaneous
  Country: JP (occurrence: JP)
  Receive Date: 20200404
  Receipt Date: 20210729
  Transmission Date: 20211014
  Serious: Yes (Hospitalization, Other)
  Sender: FDA-Public Use
  Company Number: JP-AMGEN-JPNSP2020055894

PATIENT
  Age: 43 Year
  Sex: Female
  Weight: 42.8 kg

DRUGS (54)
  1. PARSABIV [Suspect]
     Active Substance: ETELCALCETIDE HYDROCHLORIDE
     Dosage: 5 MILLIGRAM, QWK
     Route: 010
     Dates: start: 20201128
  2. ROCALTROL [Concomitant]
     Active Substance: CALCITRIOL
     Dosage: 1.25 MICROGRAM, QWK
     Route: 042
     Dates: start: 20180917, end: 20181008
  3. ROCALTROL [Concomitant]
     Active Substance: CALCITRIOL
     Dosage: 0.5 MICROGRAM, Q4WK
     Route: 042
     Dates: start: 20190828, end: 20200826
  4. ROCALTROL [Concomitant]
     Active Substance: CALCITRIOL
     Dosage: 1.5 MICROGRAM, Q84H
     Route: 042
     Dates: start: 20181224, end: 20190104
  5. ROCALTROL [Concomitant]
     Active Substance: CALCITRIOL
     Dosage: 1.5 MICROGRAM, Q56H
     Route: 042
     Dates: start: 20190107, end: 20190202
  6. ROCALTROL [Concomitant]
     Active Substance: CALCITRIOL
     Dosage: 1.5 MICROGRAM, Q84H
     Route: 042
     Dates: start: 20190204
  7. ROCALTROL [Concomitant]
     Active Substance: CALCITRIOL
     Dosage: 1 MICROGRAM, Q2WK
     Route: 042
     Dates: start: 20190206, end: 20190821
  8. PHOSBLOCK [Concomitant]
     Active Substance: FERRIC HYDROXIDE
     Dosage: 1250 MILLIGRAM, QD
     Route: 065
     Dates: start: 20180815, end: 20181009
  9. MIRCERA [Concomitant]
     Active Substance: METHOXY POLYETHYLENE GLYCOL-EPOETIN BETA
     Dosage: 25 MICROGRAM, QWK
     Route: 065
     Dates: start: 20180914, end: 20181130
  10. MIRCERA [Concomitant]
     Active Substance: METHOXY POLYETHYLENE GLYCOL-EPOETIN BETA
     Dosage: 50 MICROGRAM, QWK
     Route: 065
     Dates: start: 20180901, end: 20180907
  11. MIRCERA [Concomitant]
     Active Substance: METHOXY POLYETHYLENE GLYCOL-EPOETIN BETA
     Dosage: 25 MICROGRAM, QWK
     Route: 065
     Dates: start: 20200502, end: 20200606
  12. ROCALTROL [Concomitant]
     Active Substance: CALCITRIOL
     Dosage: 1 MICROGRAM, QWK
     Route: 042
     Dates: start: 20181015, end: 20181210
  13. RIONA [Concomitant]
     Active Substance: FERRIC CITRATE ANHYDROUS
     Dosage: 2500 MILLIGRAM, QD
     Route: 065
     Dates: end: 20190815
  14. RIONA [Concomitant]
     Active Substance: FERRIC CITRATE ANHYDROUS
     Dosage: 3000 MILLIGRAM, QD
     Route: 065
     Dates: start: 20190816, end: 20200813
  15. MIRCERA [Concomitant]
     Active Substance: METHOXY POLYETHYLENE GLYCOL-EPOETIN BETA
     Dosage: 50 MICROGRAM, Q4WK
     Route: 065
     Dates: start: 20190913, end: 20191108
  16. ROCALTROL [Concomitant]
     Active Substance: CALCITRIOL
     Dosage: 1.5 MICROGRAM, Q84H
     Route: 042
     Dates: start: 20181012, end: 20181214
  17. ROCALTROL [Concomitant]
     Active Substance: CALCITRIOL
     Dosage: 0.5 MICROGRAM, QWK
     Route: 042
     Dates: start: 20201007, end: 20201014
  18. PHOSBLOCK [Concomitant]
     Active Substance: FERRIC HYDROXIDE
     Dosage: 2500 MILLIGRAM, QD
     Route: 065
     Dates: start: 20181010, end: 20181129
  19. PHOSBLOCK [Concomitant]
     Active Substance: FERRIC HYDROXIDE
     Dosage: 3000 MILLIGRAM, QD
     Route: 065
     Dates: start: 20200711
  20. MIRCERA [Concomitant]
     Active Substance: METHOXY POLYETHYLENE GLYCOL-EPOETIN BETA
     Dosage: 25 MICROGRAM, QWK
     Route: 065
     Dates: start: 20200313, end: 20200327
  21. MIRCERA [Concomitant]
     Active Substance: METHOXY POLYETHYLENE GLYCOL-EPOETIN BETA
     Dosage: 25 MICROGRAM, QWK
     Route: 065
     Dates: start: 20201010, end: 20201024
  22. ROCALTROL [Concomitant]
     Active Substance: CALCITRIOL
     Dosage: 1.5 MICROGRAM, Q2WK
     Route: 042
     Dates: start: 20190213, end: 20190814
  23. ROCALTROL [Concomitant]
     Active Substance: CALCITRIOL
     Dosage: 1 MICROGRAM, QWK
     Route: 042
     Dates: start: 20201021, end: 20201021
  24. ROCALTROL [Concomitant]
     Active Substance: CALCITRIOL
     Dosage: 0.3 MICROGRAM, QWK
     Route: 042
     Dates: start: 20210317
  25. PHOSBLOCK [Concomitant]
     Active Substance: FERRIC HYDROXIDE
     Dosage: 1000 MILLIGRAM, QD
     Route: 065
     Dates: start: 20180509, end: 20180814
  26. MIRCERA [Concomitant]
     Active Substance: METHOXY POLYETHYLENE GLYCOL-EPOETIN BETA
     Dosage: 16.7 MICROGRAM, QWK
     Route: 065
     Dates: start: 20191220, end: 20200214
  27. MIRCERA [Concomitant]
     Active Substance: METHOXY POLYETHYLENE GLYCOL-EPOETIN BETA
     Dosage: 25 MICROGRAM, QWK
     Route: 065
     Dates: start: 20200411, end: 20200418
  28. MIRCERA [Concomitant]
     Active Substance: METHOXY POLYETHYLENE GLYCOL-EPOETIN BETA
     Dosage: 25 MICROGRAM, QWK
     Route: 065
     Dates: start: 20201107, end: 20201121
  29. MIRCERA [Concomitant]
     Active Substance: METHOXY POLYETHYLENE GLYCOL-EPOETIN BETA
     Dosage: 25 MICROGRAM, QWK
     Route: 065
     Dates: start: 20210514, end: 20210528
  30. MIRCERA [Concomitant]
     Active Substance: METHOXY POLYETHYLENE GLYCOL-EPOETIN BETA
     Dosage: 87.5 MICROGRAM, QWK
     Route: 065
     Dates: end: 20180824
  31. MIRCERA [Concomitant]
     Active Substance: METHOXY POLYETHYLENE GLYCOL-EPOETIN BETA
     Dosage: 37.5 MICROGRAM, QWK
     Route: 065
     Dates: start: 20181214, end: 20190316
  32. MIRCERA [Concomitant]
     Active Substance: METHOXY POLYETHYLENE GLYCOL-EPOETIN BETA
     Dosage: 25 MICROGRAM, QWK
     Route: 065
     Dates: start: 20210102, end: 20210402
  33. ROCALTROL [Concomitant]
     Active Substance: CALCITRIOL
     Dosage: 1.5 MICROGRAM, Q56H
     Route: 042
     Dates: start: 20180207, end: 20180907
  34. ROCALTROL [Concomitant]
     Active Substance: CALCITRIOL
     Dosage: 1 MICROGRAM, Q2WK
     Route: 042
     Dates: start: 20190904, end: 20200902
  35. ROCALTROL [Concomitant]
     Active Substance: CALCITRIOL
     Dosage: 1.5 MICROGRAM, Q84H
     Route: 042
     Dates: start: 20180914, end: 20181010
  36. MIRCERA [Concomitant]
     Active Substance: METHOXY POLYETHYLENE GLYCOL-EPOETIN BETA
     Dosage: 18.75 MICROGRAM, QWK
     Route: 065
     Dates: start: 20190322, end: 20190705
  37. MIRCERA [Concomitant]
     Active Substance: METHOXY POLYETHYLENE GLYCOL-EPOETIN BETA
     Dosage: 25 MICROGRAM, QWK
     Route: 065
     Dates: start: 20200221, end: 20200228
  38. MIRCERA [Concomitant]
     Active Substance: METHOXY POLYETHYLENE GLYCOL-EPOETIN BETA
     Dosage: 25 MICROGRAM, QWK
     Route: 065
     Dates: start: 20200718, end: 20200731
  39. ROCALTROL [Concomitant]
     Active Substance: CALCITRIOL
     Dosage: 1 MICROGRAM, QWK
     Route: 042
     Dates: start: 20181226, end: 20190102
  40. ROCALTROL [Concomitant]
     Active Substance: CALCITRIOL
     Dosage: 0.5 MICROGRAM, QWK
     Route: 042
     Dates: start: 20200909, end: 20200923
  41. PHOSBLOCK [Concomitant]
     Active Substance: FERRIC HYDROXIDE
     Dosage: 3500 MILLIGRAM, QD
     Route: 065
     Dates: start: 20181130, end: 20200710
  42. MIRCERA [Concomitant]
     Active Substance: METHOXY POLYETHYLENE GLYCOL-EPOETIN BETA
     Dosage: 25 MICROGRAM, QWK
     Route: 065
     Dates: start: 20190712, end: 20190906
  43. MIRCERA [Concomitant]
     Active Substance: METHOXY POLYETHYLENE GLYCOL-EPOETIN BETA
     Dosage: 25 MICROGRAM, QWK
     Route: 065
     Dates: start: 20191115, end: 20191213
  44. MIRCERA [Concomitant]
     Active Substance: METHOXY POLYETHYLENE GLYCOL-EPOETIN BETA
     Dosage: 25 MICROGRAM, QWK
     Route: 065
     Dates: start: 20200619, end: 20200704
  45. MIRCERA [Concomitant]
     Active Substance: METHOXY POLYETHYLENE GLYCOL-EPOETIN BETA
     Dosage: 25 MICROGRAM, QWK
     Route: 065
     Dates: start: 20201205, end: 20201219
  46. PARSABIV [Suspect]
     Active Substance: ETELCALCETIDE HYDROCHLORIDE
     Indication: HYPERPARATHYROIDISM SECONDARY
     Dosage: 2.5 MILLIGRAM, QWK
     Route: 010
     Dates: start: 20190816, end: 20201121
  47. ROCALTROL [Concomitant]
     Active Substance: CALCITRIOL
     Dosage: 1.5 MICROGRAM, Q56H
     Route: 042
     Dates: start: 20181217, end: 20181221
  48. ROCALTROL [Concomitant]
     Active Substance: CALCITRIOL
     Dosage: 1 MICROGRAM, QWK
     Route: 042
     Dates: start: 20200930, end: 20200930
  49. ROCALTROL [Concomitant]
     Active Substance: CALCITRIOL
     Dosage: 0.5 MICROGRAM, QWK
     Route: 042
     Dates: start: 20201028, end: 20210310
  50. RIONA [Concomitant]
     Active Substance: FERRIC CITRATE ANHYDROUS
     Dosage: 3250 MILLIGRAM, QD
     Route: 065
     Dates: start: 20200814
  51. FOSRENOL [Concomitant]
     Active Substance: LANTHANUM CARBONATE
     Dosage: 1000 MILLIGRAM, QD
     Route: 048
     Dates: start: 20190301
  52. MIRCERA [Concomitant]
     Active Substance: METHOXY POLYETHYLENE GLYCOL-EPOETIN BETA
     Dosage: 25 MICROGRAM, QWK
     Route: 065
     Dates: start: 20200814, end: 20200829
  53. MIRCERA [Concomitant]
     Active Substance: METHOXY POLYETHYLENE GLYCOL-EPOETIN BETA
     Dosage: 25 MICROGRAM, QWK
     Route: 065
     Dates: start: 20200912, end: 20200926
  54. MIRCERA [Concomitant]
     Active Substance: METHOXY POLYETHYLENE GLYCOL-EPOETIN BETA
     Dosage: 25 MICROGRAM, QWK
     Route: 065
     Dates: start: 20210416, end: 20210501

REACTIONS (2)
  - Shunt occlusion [Recovered/Resolved]
  - Shunt occlusion [Recovered/Resolved]

NARRATIVE: CASE EVENT DATE: 20191123
